FAERS Safety Report 9965746 (Version 1)
Quarter: 2014Q1

REPORT INFORMATION
  Report Type: Report from Study
  Country: US (occurrence: US)
  Receive Date: 20140305
  Receipt Date: 20140305
  Transmission Date: 20141002
  Serious: No
  Sender: FDA-Public Use
  Company Number: US-ABBVIE-13P-163-1123325-00

PATIENT
  Age: 49 Year
  Sex: Female

DRUGS (6)
  1. HUMIRA [Suspect]
     Indication: CROHN^S DISEASE
     Dates: start: 201301
  2. SINGULAIR [Concomitant]
     Indication: ASTHMA
  3. TOPAMAX [Concomitant]
     Indication: MIGRAINE
  4. LEXAPRO [Concomitant]
     Indication: ANXIETY
  5. NORCO [Concomitant]
     Indication: MIGRAINE
     Dosage: 10/325
  6. NORTRIPTYLINE [Concomitant]
     Indication: MIGRAINE

REACTIONS (2)
  - Hypoglycaemia [Not Recovered/Not Resolved]
  - Pollakiuria [Not Recovered/Not Resolved]
